FAERS Safety Report 10657324 (Version 4)
Quarter: 2015Q1

REPORT INFORMATION
  Report Type: Spontaneous
  Country: US (occurrence: US)
  Receive Date: 20141217
  Receipt Date: 20150306
  Transmission Date: 20150720
  Serious: Yes (Hospitalization, Disabling, Other)
  Sender: FDA-Public Use
  Company Number: US-UNITED THERAPEUTICS-UNT-2014-012243

PATIENT
  Sex: Female
  Weight: 53.61 kg

DRUGS (4)
  1. OPSUMIT [Concomitant]
     Active Substance: MACITENTAN
     Indication: PRODUCT USED FOR UNKNOWN INDICATION
  2. TYVASO [Suspect]
     Active Substance: TREPROSTINIL
     Indication: PULMONARY ARTERIAL HYPERTENSION
     Dosage: 54 ?G, QID
     Dates: start: 20131106
  3. TYVASO [Suspect]
     Active Substance: TREPROSTINIL
     Dosage: 54 ?G, QID
     Dates: start: 20141001
  4. ADEMPAS [Concomitant]
     Active Substance: RIOCIGUAT
     Indication: PRODUCT USED FOR UNKNOWN INDICATION

REACTIONS (9)
  - Mobility decreased [Unknown]
  - Treatment noncompliance [Unknown]
  - Fall [Unknown]
  - Blood pressure abnormal [Unknown]
  - Fatigue [Unknown]
  - Dehydration [Unknown]
  - Inappropriate schedule of drug administration [Unknown]
  - Pulmonary arterial hypertension [Unknown]
  - Depressed mood [Unknown]

NARRATIVE: CASE EVENT DATE: 2014
